FAERS Safety Report 6246594-5 (Version None)
Quarter: 2009Q2

REPORT INFORMATION
  Report Type: 
  Country: None (occurrence: None)
  Receive Date: 20090626
  Receipt Date: 20090616
  Transmission Date: 20091009
  Serious: Yes (Other)
  Sender: FDA-Public Use
  Company Number: JP-PFIZER INC-2009229325

PATIENT
  Age: 41 Year

DRUGS (1)
  1. ZITHROMAC SR [Suspect]
     Route: 048
     Dates: start: 20090420, end: 20090420

REACTIONS (1)
  - GASTROENTERITIS EOSINOPHILIC [None]
